FAERS Safety Report 23154054 (Version 2)
Quarter: 2024Q2

REPORT INFORMATION
  Report Type: Spontaneous
  Country: CA (occurrence: CA)
  Receive Date: 20231107
  Receipt Date: 20240517
  Transmission Date: 20240716
  Serious: Yes (Other)
  Sender: FDA-Public Use
  Company Number: CA-SANDOZ-SDZ2023CA051044

PATIENT
  Age: 41 Year
  Sex: Male
  Weight: 79 kg

DRUGS (6)
  1. HYDROCORTISONE [Suspect]
     Active Substance: HYDROCORTISONE
     Indication: Product used for unknown indication
     Dosage: UNK
     Route: 065
  2. INFLIXIMAB [Concomitant]
     Active Substance: INFLIXIMAB
     Indication: Crohn^s disease
     Dosage: 5.0 MG/KG
     Route: 042
  3. INFLIXIMAB [Concomitant]
     Active Substance: INFLIXIMAB
     Dosage: 5.0 MG/KG
     Route: 042
  4. INFLIXIMAB [Concomitant]
     Active Substance: INFLIXIMAB
     Dosage: 5.0 MG/KG
     Route: 042
  5. INFLIXIMAB [Concomitant]
     Active Substance: INFLIXIMAB
     Dosage: 5.0 MG/KG
     Route: 042
  6. PREDNISONE [Concomitant]
     Active Substance: PREDNISONE
     Indication: Product used for unknown indication
     Dosage: 1 DF
     Route: 048

REACTIONS (3)
  - Nausea [Unknown]
  - Vomiting [Unknown]
  - Drug hypersensitivity [Unknown]
